FAERS Safety Report 7711543 (Version 4)
Quarter: 2012Q4

REPORT INFORMATION
  Report Type: 
  Country: CA (occurrence: CA)
  Receive Date: 20101215
  Receipt Date: 20120831
  Transmission Date: 20130627
  Serious: Yes (Other)
  Sender: FDA-Public Use
  Company Number: PHHY2010CA84662

PATIENT
  Sex: Female

DRUGS (3)
  1. ACLASTA [Suspect]
     Indication: OSTEOPOROSIS
     Dosage: UNK
     Route: 042
     Dates: start: 20081125
  2. ACLASTA [Suspect]
     Dosage: UNK
     Route: 042
     Dates: start: 20091215
  3. ACLASTA [Suspect]
     Route: 042
     Dates: start: 20110913

REACTIONS (2)
  - Gastrointestinal carcinoma [Recovered/Resolved]
  - Loose tooth [Unknown]
